FAERS Safety Report 7297946-6 (Version None)
Quarter: 2011Q1

REPORT INFORMATION
  Report Type: 
  Country: None (occurrence: None)
  Receive Date: 20110217
  Receipt Date: 20110207
  Transmission Date: 20110831
  Serious: Yes (Hospitalization)
  Sender: FDA-Public Use
  Company Number: FI-BAYER-2011-012003

PATIENT
  Sex: Female

DRUGS (11)
  1. DOXAL [DOXEPIN HYDROCHLORIDE] [Concomitant]
     Dosage: 10 MG, BID
     Route: 048
  2. LEVEMIR [Concomitant]
     Dosage: 102 IU, QD (100 U/ML)
     Route: 058
  3. PARAMAX [PARACETAMOL] [Concomitant]
     Dosage: 1000 MG, TID (500MG 2X3)
     Route: 048
  4. WARFARIN SODIUM [Interacting]
     Dosage: UNK
     Route: 048
     Dates: end: 20110117
  5. BISOPROLOL RATIOPHARM [Concomitant]
     Dosage: 2.5 MG, QD (0.5 X1)
     Route: 048
  6. DUPHALAC DRY [Concomitant]
     Dosage: 30 ML, QD
     Route: 048
  7. AVELOX [Suspect]
     Indication: LUNG INFECTION
     Dosage: 400 MG, QD
     Route: 048
     Dates: start: 20110110, end: 20110114
  8. FURESIS [Concomitant]
     Dosage: 80 MG, BID (40 MG 2X2)
     Route: 048
  9. LYRICA [Concomitant]
     Dosage: 25 MG, QD
     Route: 048
     Dates: start: 20101104
  10. KEFEXIN [Concomitant]
     Indication: LUNG INFECTION
     Dosage: 750 MG, BID (1X2)
     Route: 048
     Dates: start: 20110114, end: 20110117
  11. DIGOXIN BM [Concomitant]
     Dosage: 0.125 MG, QD
     Route: 048

REACTIONS (2)
  - THROMBOCYTOPENIA [None]
  - MELAENA [None]
